FAERS Safety Report 8265027-0 (Version None)
Quarter: 2012Q2

REPORT INFORMATION
  Report Type: 
  Country: None (occurrence: None)
  Receive Date: 20120403
  Receipt Date: 20120323
  Transmission Date: 20120825
  Serious: Yes (Other)
  Sender: FDA-Public Use
  Company Number: DE-1191328

PATIENT
  Age: 79 Year
  Sex: Female

DRUGS (1)
  1. TRAVATAN [Suspect]
     Indication: OCULAR HYPERTENSION
     Dosage: (ONCE DAILY OPHTHALMIC)
     Route: 047
     Dates: start: 20080101, end: 20110101

REACTIONS (1)
  - INTRAOCULAR PRESSURE INCREASED [None]
